FAERS Safety Report 14258591 (Version 1)
Quarter: 2017Q4

REPORT INFORMATION
  Report Type: Spontaneous
  Country: US (occurrence: US)
  Receive Date: 20171207
  Receipt Date: 20171207
  Transmission Date: 20180321
  Serious: No
  Sender: FDA-Public Use
  Company Number: US-BAYER-2017-236685

PATIENT
  Age: 64 Year
  Sex: Female
  Weight: 42 kg

DRUGS (2)
  1. MIRALAX [Suspect]
     Active Substance: POLYETHYLENE GLYCOL 3350
     Indication: IRRITABLE BOWEL SYNDROME
     Dosage: 1 DF, UNK 1 CAPFUL DOSE
     Route: 048
  2. ALTACE [Concomitant]
     Active Substance: RAMIPRIL
     Dosage: UNK

REACTIONS (5)
  - Drug administration error [Unknown]
  - Product use in unapproved indication [Unknown]
  - Product odour abnormal [None]
  - Product taste abnormal [Unknown]
  - Incorrect drug administration duration [Unknown]
